FAERS Safety Report 17788303 (Version 2)
Quarter: 2023Q2

REPORT INFORMATION
  Report Type: Report from Study
  Country: CA (occurrence: CA)
  Receive Date: 20200514
  Receipt Date: 20230614
  Transmission Date: 20230722
  Serious: Yes (Other)
  Sender: FDA-Public Use
  Company Number: CA-JNJFOC-20190421035

PATIENT
  Age: 5 Year
  Sex: Male
  Weight: 46.72 kg

DRUGS (2)
  1. STELARA [Suspect]
     Active Substance: USTEKINUMAB
     Indication: Psoriasis
     Dosage: STRENGTH = 22.5 MG
     Route: 058
     Dates: start: 20181222
  2. STELARA [Suspect]
     Active Substance: USTEKINUMAB
     Dosage: DOSAGE ADMINISTERED 0.75 MG/KG
     Route: 058

REACTIONS (4)
  - Tonsillar hypertrophy [Recovered/Resolved]
  - Off label use [Unknown]
  - Product use issue [Unknown]
  - Inappropriate schedule of product administration [Unknown]

NARRATIVE: CASE EVENT DATE: 20181222
